FAERS Safety Report 17822227 (Version 2)
Quarter: 2020Q3

REPORT INFORMATION
  Report Type: Spontaneous
  Country: US (occurrence: US)
  Receive Date: 20200526
  Receipt Date: 20200904
  Transmission Date: 20201102
  Serious: Yes (Life-Threatening, Hospitalization, Other)
  Sender: FDA-Public Use
  Company Number: US-AUROBINDO-AUR-APL-2020-025349

PATIENT
  Age: 62 Year
  Sex: Male

DRUGS (4)
  1. TRIMETHOPRIM+SULFAMETHOXAZOLE [Suspect]
     Active Substance: SULFAMETHOXAZOLE\TRIMETHOPRIM
     Indication: PROPHYLAXIS
     Dosage: UNK
     Route: 065
  2. TRIMETHOPRIM+SULFAMETHOXAZOLE [Suspect]
     Active Substance: SULFAMETHOXAZOLE\TRIMETHOPRIM
     Indication: ANTIFUNGAL PROPHYLAXIS
  3. PREDNISONE. [Concomitant]
     Active Substance: PREDNISONE
     Indication: ANTIFUNGAL PROPHYLAXIS
     Dosage: 80 MILLIGRAM, ONCE A DAY
     Route: 065
  4. PREDNISONE. [Concomitant]
     Active Substance: PREDNISONE
     Indication: ACUTE FEBRILE NEUTROPHILIC DERMATOSIS
     Dosage: UNK, HIGH DOSE
     Route: 065

REACTIONS (19)
  - Diarrhoea [Unknown]
  - Renal tubular necrosis [Not Recovered/Not Resolved]
  - End stage renal disease [Not Recovered/Not Resolved]
  - Hypotension [Not Recovered/Not Resolved]
  - Cardiac hypertrophy [Unknown]
  - Ejection fraction decreased [Recovering/Resolving]
  - Confusional state [Unknown]
  - Anaemia [Not Recovered/Not Resolved]
  - Chromaturia [Unknown]
  - Anuria [Not Recovered/Not Resolved]
  - Thrombotic microangiopathy [Not Recovered/Not Resolved]
  - Acute kidney injury [Unknown]
  - Renal failure [Not Recovered/Not Resolved]
  - Hyperkalaemia [Recovered/Resolved]
  - Pericardial effusion [Recovering/Resolving]
  - Microangiopathic haemolytic anaemia [Unknown]
  - Electrocardiogram QRS complex prolonged [Unknown]
  - Thrombocytopenia [Recovered/Resolved]
  - Toxicity to various agents [Unknown]
